FAERS Safety Report 4767794-7 (Version None)
Quarter: 2005Q3

REPORT INFORMATION
  Report Type: 
  Country: None (occurrence: None)
  Receive Date: 20050912
  Receipt Date: 20050902
  Transmission Date: 20060218
  Serious: Yes (Hospitalization, Other)
  Sender: FDA-Public Use
  Company Number: 6017058

PATIENT
  Sex: Female

DRUGS (5)
  1. BISOMERCK (BISOPROLOL FUMARATE) [Suspect]
  2. BLOPRESS (CANDESARTAN CILEXETIL) [Concomitant]
  3. DIGOXIN [Concomitant]
  4. NIFEDIPINE [Concomitant]
  5. LASIX [Concomitant]

REACTIONS (2)
  - HALLUCINATION, AUDITORY [None]
  - PULMONARY OEDEMA [None]
